FAERS Safety Report 6983458-3 (Version None)
Quarter: 2010Q3

REPORT INFORMATION
  Report Type: 
  Country: None (occurrence: None)
  Receive Date: 20100914
  Receipt Date: 20080617
  Transmission Date: 20110219
  Serious: No
  Sender: FDA-Public Use
  Company Number: US-WYE-H04203308

PATIENT
  Age: 65 Year
  Sex: Male
  Weight: 65.83 kg

DRUGS (2)
  1. ADVIL LIQUI-GELS [Suspect]
     Indication: ARTHRITIS
     Route: 048
     Dates: start: 19980101
  2. SLIPPERY ELM [Concomitant]

REACTIONS (1)
  - IRRITABLE BOWEL SYNDROME [None]
